FAERS Safety Report 20421963 (Version 1)
Quarter: 2022Q1

REPORT INFORMATION
  Report Type: Spontaneous
  Country: US (occurrence: US)
  Receive Date: 20220203
  Receipt Date: 20220203
  Transmission Date: 20220423
  Serious: No
  Sender: FDA-Public Use
  Company Number: US-KYOWAKIRIN-2022AKK000654

PATIENT

DRUGS (2)
  1. POTELIGEO [Suspect]
     Active Substance: MOGAMULIZUMAB-KPKC
     Indication: Peripheral T-cell lymphoma unspecified
     Dosage: UNK UNK, 1X/2 WEEKS
     Route: 065
  2. PEGINTERFERON ALFA-2A [Concomitant]
     Active Substance: PEGINTERFERON ALFA-2A
     Indication: Peripheral T-cell lymphoma unspecified
     Dosage: UNK UNK, 1X/2 WEEKS
     Route: 065

REACTIONS (1)
  - Drug eruption [Recovered/Resolved]
